FAERS Safety Report 18405738 (Version 3)
Quarter: 2021Q1

REPORT INFORMATION
  Report Type: Report from Study
  Country: IT (occurrence: IT)
  Receive Date: 20201020
  Receipt Date: 20210304
  Transmission Date: 20210419
  Serious: Yes (Hospitalization)
  Sender: FDA-Public Use
  Company Number: IT-PFIZER INC-2020402237

PATIENT
  Age: 14 Year
  Sex: Male
  Weight: 57 kg

DRUGS (17)
  1. DECADRON [Concomitant]
     Active Substance: DEXAMETHASONE
     Dosage: UNK
     Dates: start: 20200801, end: 20200801
  2. BACTRIM [Concomitant]
     Active Substance: SULFAMETHOXAZOLE\TRIMETHOPRIM
     Dosage: UNK
     Dates: start: 20200801, end: 20201101
  3. KCL?RETARD [Concomitant]
     Active Substance: POTASSIUM CHLORIDE
     Dosage: UNK
     Dates: start: 20200501, end: 20201101
  4. LANSOPRAZOLE. [Concomitant]
     Active Substance: LANSOPRAZOLE
     Dosage: UNK
     Dates: start: 20200801, end: 20201101
  5. FENTANEST [Suspect]
     Active Substance: FENTANYL CITRATE
     Indication: SEDATIVE THERAPY
     Dosage: UNK
     Dates: start: 20200730, end: 20200730
  6. THIOPENTAL SODIUM. [Suspect]
     Active Substance: THIOPENTAL SODIUM
     Indication: SEDATIVE THERAPY
     Dosage: UNK
     Route: 065
     Dates: start: 20200730, end: 20200730
  7. MORPHINE [Concomitant]
     Active Substance: MORPHINE
     Dosage: UNK
     Dates: start: 20200801, end: 20200801
  8. THIOPENTAL SODIUM. [Suspect]
     Active Substance: THIOPENTAL SODIUM
     Dosage: UNK
     Dates: start: 20200801, end: 20201101
  9. ACICLOVIR [Concomitant]
     Active Substance: ACYCLOVIR
     Dosage: UNK
     Dates: start: 20200101, end: 20201101
  10. UROKINASE [Concomitant]
     Active Substance: UROKINASE
     Dosage: UNK
     Dates: start: 20200731, end: 20200801
  11. FLUCONAZOLE. [Concomitant]
     Active Substance: FLUCONAZOLE
     Dosage: UNK
     Dates: start: 20200101, end: 20200928
  12. TRAMADOL. [Concomitant]
     Active Substance: TRAMADOL
     Dosage: UNK
     Dates: start: 20200801, end: 20200801
  13. FENTANEST [Suspect]
     Active Substance: FENTANYL CITRATE
     Indication: CHEST PAIN
     Dosage: UNK
     Route: 065
     Dates: start: 20200801, end: 20201101
  14. FUROSEMIDE. [Concomitant]
     Active Substance: FUROSEMIDE
     Dosage: UNK
     Dates: start: 20200801, end: 20200801
  15. CEFTAZIDIME. [Concomitant]
     Active Substance: CEFTAZIDIME
     Dosage: UNK
     Dates: start: 20200731, end: 20200801
  16. PROPOFOL. [Suspect]
     Active Substance: PROPOFOL
     Indication: SEDATIVE THERAPY
     Dosage: UNK
     Dates: start: 20200730, end: 20200730
  17. PROPOFOL. [Suspect]
     Active Substance: PROPOFOL
     Dosage: UNK
     Dates: start: 20200801, end: 20201101

REACTIONS (3)
  - Fatigue [Recovered/Resolved]
  - Headache [Recovered/Resolved]
  - Vomiting [Recovered/Resolved]

NARRATIVE: CASE EVENT DATE: 20200730
